FAERS Safety Report 8938509 (Version 1)
Quarter: 2012Q4

REPORT INFORMATION
  Report Type: 
  Country: US (occurrence: US)
  Receive Date: 20121130
  Receipt Date: 20121130
  Transmission Date: 20130627
  Serious: Yes (Hospitalization)
  Sender: FDA-Public Use
  Company Number: US-BRISTOL-MYERS SQUIBB COMPANY-17145947

PATIENT
  Age: 60 Year
  Sex: Female
  Weight: 81.63 kg

DRUGS (5)
  1. ORENCIA [Suspect]
     Indication: RHEUMATOID ARTHRITIS
     Dosage: No of inf:2last inf: 17Nov2012
3 doses every 2 weeks, and then once a month
     Route: 042
     Dates: start: 20121024
  2. LEFLUNOMIDE [Concomitant]
  3. PREDNISONE [Concomitant]
  4. AGGRENOX [Concomitant]
  5. ATORVASTATIN [Concomitant]

REACTIONS (1)
  - Cerebrovascular accident [Not Recovered/Not Resolved]
